FAERS Safety Report 24887781 (Version 1)
Quarter: 2025Q1

REPORT INFORMATION
  Report Type: Report from Study
  Country: CA (occurrence: CA)
  Receive Date: 20250127
  Receipt Date: 20250127
  Transmission Date: 20250409
  Serious: Yes (Other)
  Sender: TAKEDA
  Company Number: CA-TAKEDA-2023TUS080694

PATIENT
  Sex: Female

DRUGS (11)
  1. IXAZOMIB [Suspect]
     Active Substance: IXAZOMIB
     Indication: Plasma cell myeloma
  2. FILGRASTIM [Concomitant]
     Active Substance: FILGRASTIM
  3. INSULIN NOS [Concomitant]
     Active Substance: INSULIN NOS
  4. OZEMPIC [Concomitant]
     Active Substance: SEMAGLUTIDE
  5. ARANESP [Concomitant]
     Active Substance: DARBEPOETIN ALFA
  6. ATORVASTATIN [Concomitant]
     Active Substance: ATORVASTATIN
  7. MAGNESIUM [Concomitant]
     Active Substance: MAGNESIUM
  8. POTASSIUM [Concomitant]
     Active Substance: POTASSIUM
  9. CALCIUM [Concomitant]
     Active Substance: CALCIUM
  10. IRON [Concomitant]
     Active Substance: IRON
  11. ESOMEPRAZOLE [Concomitant]
     Active Substance: ESOMEPRAZOLE

REACTIONS (2)
  - Plasma cell myeloma [Unknown]
  - Off label use [Unknown]
